FAERS Safety Report 14925301 (Version 1)
Quarter: 2018Q2

REPORT INFORMATION
  Report Type: Spontaneous
  Country: US (occurrence: US)
  Receive Date: 20180522
  Receipt Date: 20180522
  Transmission Date: 20180711
  Serious: Yes (Other)
  Sender: FDA-Public Use
  Company Number: US-ALLERGAN-1826825US

PATIENT
  Age: 13 Year
  Sex: Male
  Weight: 42.18 kg

DRUGS (14)
  1. MELATONIN [Concomitant]
     Active Substance: MELATONIN
     Indication: INSOMNIA
  2. CALCIUM [Concomitant]
     Active Substance: CALCIUM
     Indication: PAEDIATRIC AUTOIMMUNE NEUROPSYCHIATRIC DISORDERS ASSOCIATED WITH STREPTOCOCCAL INFECTION
  3. CELEXA [Suspect]
     Active Substance: CITALOPRAM HYDROBROMIDE
     Indication: OBSESSIVE-COMPULSIVE DISORDER
     Dosage: 3 MG, QD
     Route: 065
     Dates: start: 2012, end: 2013
  4. TENEX [Concomitant]
     Active Substance: GUANFACINE HYDROCHLORIDE
     Indication: AUTISM SPECTRUM DISORDER
     Dosage: 1 MG, BID
  5. FOLINIC ACID [Concomitant]
     Active Substance: LEUCOVORIN
     Indication: PAEDIATRIC AUTOIMMUNE NEUROPSYCHIATRIC DISORDERS ASSOCIATED WITH STREPTOCOCCAL INFECTION
  6. OMEGA 3 FISH OIL [Concomitant]
     Active Substance: FISH OIL\OMEGA-3 FATTY ACIDS
     Indication: PAEDIATRIC AUTOIMMUNE NEUROPSYCHIATRIC DISORDERS ASSOCIATED WITH STREPTOCOCCAL INFECTION
  7. CELEXA [Suspect]
     Active Substance: CITALOPRAM HYDROBROMIDE
     Dosage: 3 MG, QD
     Route: 065
     Dates: start: 20180512
  8. MAGNESIUM [Concomitant]
     Active Substance: MAGNESIUM
     Indication: PAEDIATRIC AUTOIMMUNE NEUROPSYCHIATRIC DISORDERS ASSOCIATED WITH STREPTOCOCCAL INFECTION
  9. VITAMIN C [Concomitant]
     Active Substance: ASCORBIC ACID
     Indication: PAEDIATRIC AUTOIMMUNE NEUROPSYCHIATRIC DISORDERS ASSOCIATED WITH STREPTOCOCCAL INFECTION
  10. VITAMIN D3 [Concomitant]
     Active Substance: CHOLECALCIFEROL
     Indication: PAEDIATRIC AUTOIMMUNE NEUROPSYCHIATRIC DISORDERS ASSOCIATED WITH STREPTOCOCCAL INFECTION
  11. CELEXA [Suspect]
     Active Substance: CITALOPRAM HYDROBROMIDE
     Indication: AUTISM SPECTRUM DISORDER
     Dosage: 5 MG, QD
     Route: 065
     Dates: start: 2013
  12. CELEXA [Suspect]
     Active Substance: CITALOPRAM HYDROBROMIDE
     Dosage: 3 MG, QD
     Route: 065
  13. CELEXA [Suspect]
     Active Substance: CITALOPRAM HYDROBROMIDE
     Dosage: 5 MG, QD
     Route: 065
     Dates: start: 20180414, end: 20180511
  14. NAC [Concomitant]
     Indication: OBSESSIVE-COMPULSIVE DISORDER

REACTIONS (11)
  - Intentional self-injury [Recovering/Resolving]
  - Psychomotor hyperactivity [Recovered/Resolved]
  - Anger [Recovering/Resolving]
  - Aggression [Recovering/Resolving]
  - Off label use [Unknown]
  - Sensory disturbance [Recovering/Resolving]
  - Activation syndrome [Recovered/Resolved]
  - Sleep disorder [Recovering/Resolving]
  - Irritability [Recovered/Resolved]
  - Aggression [Recovered/Resolved]
  - Irritability [Recovering/Resolving]

NARRATIVE: CASE EVENT DATE: 20180507
